FAERS Safety Report 6298208-6 (Version None)
Quarter: 2009Q3

REPORT INFORMATION
  Report Type: 
  Country: None (occurrence: None)
  Receive Date: 20090805
  Receipt Date: 20090727
  Transmission Date: 20100115
  Serious: Yes (Other)
  Sender: FDA-Public Use
  Company Number: BR-AVENTIS-200917853GDDC

PATIENT
  Age: 72 Year
  Sex: Female
  Weight: 57 kg

DRUGS (7)
  1. LANTUS [Suspect]
     Route: 058
     Dates: start: 20050101
  2. OPTIPEN (INSULIN PUMP) [Suspect]
     Dates: start: 20050101
  3. OMEPRAZOLE [Concomitant]
     Dosage: DOSE QUANTITY: 1
     Route: 048
  4. ALENDRONATE SODIUM [Concomitant]
     Indication: OSTEOPOROSIS
     Dosage: DOSE QUANTITY: 1
     Route: 048
     Dates: start: 20070101
  5. CALCIUM [Concomitant]
     Indication: OSTEOPOROSIS
     Dosage: DOSE QUANTITY: 1
     Route: 048
     Dates: start: 20070101
  6. RAMIPRIL [Concomitant]
     Dosage: DOSE QUANTITY: 1
     Route: 048
     Dates: start: 20050101
  7. SIMVASTATIN [Concomitant]
     Dosage: DOSE QUANTITY: 1
     Route: 048
     Dates: start: 20050101

REACTIONS (1)
  - EYE HAEMORRHAGE [None]
